FAERS Safety Report 7296756-3 (Version None)
Quarter: 2011Q1

REPORT INFORMATION
  Report Type: 
  Country: None (occurrence: None)
  Receive Date: 20110216
  Receipt Date: 20110209
  Transmission Date: 20110831
  Serious: No
  Sender: FDA-Public Use
  Company Number: A0911558A

PATIENT

DRUGS (2)
  1. LOVAZA [Suspect]
     Route: 065
  2. SUPPLEMENT [Concomitant]

REACTIONS (2)
  - FIBROSIS [None]
  - THERAPEUTIC RESPONSE UNEXPECTED [None]
